FAERS Safety Report 12181611 (Version 1)
Quarter: 2016Q1

REPORT INFORMATION
  Report Type: Spontaneous
  Country: US (occurrence: US)
  Receive Date: 20160315
  Receipt Date: 20160315
  Transmission Date: 20160526
  Serious: No
  Sender: FDA-Public Use
  Company Number: US-IMPAX LABORATORIES, INC-2015-IPXL-00413

PATIENT
  Sex: Female

DRUGS (1)
  1. LORATADINE AND PSEUDOEPHEDRINE SULFATE (OTC) [Suspect]
     Active Substance: LORATADINE\PSEUDOEPHEDRINE SULFATE
     Indication: HYPERSENSITIVITY
     Dosage: HALF A TABLET
     Route: 048
     Dates: start: 2015, end: 2015

REACTIONS (4)
  - Expired product administered [Unknown]
  - Wrong technique in product usage process [Unknown]
  - Underdose [Unknown]
  - Feeling jittery [Unknown]

NARRATIVE: CASE EVENT DATE: 2015
